FAERS Safety Report 11276730 (Version 1)
Quarter: 2015Q2

REPORT INFORMATION
  Report Type: Spontaneous
  Country: US (occurrence: None)
  Receive Date: 20150625
  Receipt Date: 20150625
  Transmission Date: 20150821
  Serious: No
  Sender: FDA-Public Use
  Company Number: A-US2015-116708

PATIENT
  Age: 51 Year
  Sex: Male

DRUGS (4)
  1. OPSUMIT [Suspect]
     Active Substance: MACITENTAN
     Indication: PULMONARY HYPERTENSION
     Route: 048
     Dates: start: 201503
  2. ADCIRCA [Concomitant]
     Active Substance: TADALAFIL
  3. COUMADIN [Concomitant]
     Active Substance: WARFARIN SODIUM
  4. TYVASO [Concomitant]
     Active Substance: TREPROSTINIL

REACTIONS (9)
  - Glossitis [None]
  - Lethargy [None]
  - Fatigue [None]
  - Insomnia [None]
  - Hypersensitivity [None]
  - Pain in jaw [None]
  - Sinus headache [None]
  - Nasal congestion [None]
  - Feeling jittery [None]
